FAERS Safety Report 21238148 (Version 1)
Quarter: 2022Q3

REPORT INFORMATION
  Report Type: Spontaneous
  Country: KR (occurrence: KR)
  Receive Date: 20220822
  Receipt Date: 20220822
  Transmission Date: 20221027
  Serious: Yes (Other)
  Sender: FDA-Public Use
  Company Number: KR-UCBSA-2022047076

PATIENT

DRUGS (3)
  1. KEPPRA [Suspect]
     Active Substance: LEVETIRACETAM
     Indication: Partial seizures
     Dosage: 4 MILLIGRAM, DAILY
  2. FYCOMPA [Suspect]
     Active Substance: PERAMPANEL
     Indication: Partial seizures
     Dosage: 2 MILLIGRAM, ONCE DAILY (QD)
  3. FYCOMPA [Suspect]
     Active Substance: PERAMPANEL
     Dosage: MAXIMUM TITRATION DOSE OF 12 MG/DAY

REACTIONS (5)
  - Adverse event [Unknown]
  - Dysarthria [Unknown]
  - Dizziness [Unknown]
  - Headache [Unknown]
  - Somnolence [Unknown]
